FAERS Safety Report 21531802 (Version 2)
Quarter: 2022Q4

REPORT INFORMATION
  Report Type: Spontaneous
  Country: JP (occurrence: JP)
  Receive Date: 20221101
  Receipt Date: 20221124
  Transmission Date: 20230113
  Serious: Yes (Hospitalization)
  Sender: FDA-Public Use
  Company Number: JP-SAKK-2022SA435451AA

PATIENT
  Age: 59 Year
  Sex: Female

DRUGS (3)
  1. DOCETAXEL [Suspect]
     Active Substance: DOCETAXEL
     Indication: Endometrial cancer stage II
     Route: 065
  2. CARBOPLATIN [Concomitant]
     Active Substance: CARBOPLATIN
     Indication: Endometrial cancer stage II
     Route: 065
  3. ACETAMINOPHEN [Concomitant]
     Active Substance: ACETAMINOPHEN
     Indication: Neuralgia
     Dosage: AS NEEDED
     Route: 065

REACTIONS (3)
  - C-reactive protein increased [Recovering/Resolving]
  - Malaise [Recovering/Resolving]
  - Neutrophil count decreased [Recovering/Resolving]
